FAERS Safety Report 26050849 (Version 2)
Quarter: 2025Q4

REPORT INFORMATION
  Report Type: Spontaneous
  Country: EU (occurrence: EU)
  Receive Date: 20251116
  Receipt Date: 20251204
  Transmission Date: 20260118
  Serious: Yes (Hospitalization, Disabling, Other)
  Sender: BAXTER
  Company Number: EU-AstraZeneca-2022A009159

PATIENT
  Age: 83 Year
  Sex: Female
  Weight: 91 kg

DRUGS (55)
  1. METOCLOPRAMIDE [Suspect]
     Active Substance: METOCLOPRAMIDE
     Indication: Constipation
     Dosage: 20 MG, PRN (10 MILLIGRAM, 2 TABLETS AS NEEDED, IN CASE OF CONSTIPATION,  BUT FOR MANY MONTHS )
     Route: 048
  2. ALPRAZOLAM [Suspect]
     Active Substance: ALPRAZOLAM
     Indication: Depression
     Dosage: UNK
     Route: 065
  3. ALPRAZOLAM [Suspect]
     Active Substance: ALPRAZOLAM
     Dosage: 0.5 MG, AVERAGE 2X/24H
     Route: 065
  4. ALPRAZOLAM [Suspect]
     Active Substance: ALPRAZOLAM
     Dosage: 2 DOSAGE FORM,  QD/0,5 MG, AD HOC, USUALLY
     Route: 065
  5. DABIGATRAN [Suspect]
     Active Substance: DABIGATRAN
     Indication: Product used for unknown indication
     Dosage: 20 MG, BID (40 MILLIGRAM DAILY)
     Route: 065
  6. DABIGATRAN [Suspect]
     Active Substance: DABIGATRAN
     Dosage: 110 MG, BID (110 MG, BID/DRUG LIST AT THE ADMISSION)
     Route: 065
  7. POTASSIUM CHLORIDE [Suspect]
     Active Substance: POTASSIUM CHLORIDE
     Indication: Product used for unknown indication
     Dosage: 1 DOSAGE FORM, QOD ( 1 DF EVERY 2 DAYS/391 MG K)
     Route: 065
  8. ALBUTEROL [Suspect]
     Active Substance: ALBUTEROL
     Indication: Product used for unknown indication
     Dosage: 100 MICROGRAM,PRN
     Route: 065
  9. ALBUTEROL [Suspect]
     Active Substance: ALBUTEROL
     Dosage: 20 MG
     Route: 065
  10. ISOSORBIDE MONONITRATE [Suspect]
     Active Substance: ISOSORBIDE MONONITRATE
     Indication: Coronary artery disease
     Dosage: 50 MG, AD HOC, USUALLY,1-2 TABLETS A DAY
     Route: 048
  11. ISOSORBIDE MONONITRATE [Suspect]
     Active Substance: ISOSORBIDE MONONITRATE
     Dosage: 1 DOSAGE FORM, QD (60.0MG  ); MODIFIED-RELEASE CAPSULE, HARD)
     Route: 048
  12. TRAMADOL [Suspect]
     Active Substance: TRAMADOL
     Indication: Product used for unknown indication
     Dosage: 50 MG
     Route: 065
  13. SPIRONOLACTONE [Suspect]
     Active Substance: SPIRONOLACTONE
     Indication: Product used for unknown indication
     Dosage: 100 MG, QD
     Route: 065
  14. LEVOTHYROXINE SODIUM [Suspect]
     Active Substance: LEVOTHYROXINE SODIUM
     Indication: Product used for unknown indication
     Dosage: 25 MG, QD
     Route: 065
  15. ALLOPURINOL [Suspect]
     Active Substance: ALLOPURINOL
     Indication: Product used for unknown indication
     Dosage: 50 MG, QD
     Route: 048
  16. ALLOPURINOL [Suspect]
     Active Substance: ALLOPURINOL
     Dosage: 100 MG, QD
     Route: 048
  17. HYDROCHLOROTHIAZIDE [Suspect]
     Active Substance: HYDROCHLOROTHIAZIDE
     Indication: Product used for unknown indication
     Dosage: 25 MG, QD
     Route: 065
  18. ATORVASTATIN [Suspect]
     Active Substance: ATORVASTATIN
     Indication: Product used for unknown indication
     Dosage: 20 MILLIGRAM,PRN
     Route: 065
  19. OMEPRAZOLE [Suspect]
     Active Substance: OMEPRAZOLE
     Indication: Product used for unknown indication
     Dosage: 20 MG, BID
     Route: 048
  20. CITALOPRAM [Suspect]
     Active Substance: CITALOPRAM
     Indication: Depression
     Dosage: 1 DOSAGE FORM, QD
     Route: 065
  21. CITALOPRAM [Suspect]
     Active Substance: CITALOPRAM
     Dosage: 40 MG, QD
     Route: 065
  22. METOPROLOL [Suspect]
     Active Substance: METOPROLOL
     Indication: Product used for unknown indication
     Dosage: 50 MG, BID
     Route: 048
  23. METOPROLOL [Suspect]
     Active Substance: METOPROLOL
     Dosage: 50 MG, QD
     Route: 048
  24. METOPROLOL [Suspect]
     Active Substance: METOPROLOL
     Dosage: 1 DOSAGE FORM, BID
     Route: 048
  25. ACETAMINOPHEN [Suspect]
     Active Substance: ACETAMINOPHEN
     Indication: Product used for unknown indication
     Dosage: 20 MG, BID
     Route: 065
  26. BETAHISTINE HYDROCHLORIDE [Suspect]
     Active Substance: BETAHISTINE HYDROCHLORIDE
     Indication: Dizziness
     Dosage: 24 MILLIGRAM,PRN
     Route: 065
  27. RAMIPRIL [Suspect]
     Active Substance: RAMIPRIL
     Indication: Cardiac failure
     Dosage: 50 MG, BID
     Route: 048
  28. RAMIPRIL [Suspect]
     Active Substance: RAMIPRIL
     Dosage: 5 MG, QD
     Route: 048
  29. GLICLAZIDE [Suspect]
     Active Substance: GLICLAZIDE
     Indication: Product used for unknown indication
     Dosage: 60 MG, TID (180 MG, QD (MODIFIED-RELEASE TABLE)
     Route: 065
  30. ZOLPIDEM [Suspect]
     Active Substance: ZOLPIDEM TARTRATE
     Indication: Product used for unknown indication
     Dosage: 10 MILLIGRAM,PRN
     Route: 065
  31. FUROSEMIDE [Suspect]
     Active Substance: FUROSEMIDE
     Indication: Product used for unknown indication
     Dosage: 120 MG, QOD (40 MILLIGRAM, 3 TABLETS EVERY 2 DAYS  )
     Route: 065
  32. ACARBOSE [Suspect]
     Active Substance: ACARBOSE
     Indication: Hyperglycaemia
     Dosage: 3 DOSAGE FORM
     Route: 048
  33. ATORVASTATIN CALCIUM [Suspect]
     Active Substance: ATORVASTATIN CALCIUM
     Indication: Product used for unknown indication
     Dosage: 1 DOSAGE FORM, QD
     Route: 065
  34. BENSERAZIDE\LEVODOPA [Suspect]
     Active Substance: BENSERAZIDE\LEVODOPA
     Indication: Product used for unknown indication
     Dosage: 62.5 MG, TID
     Route: 065
  35. BETAHISTINE [Suspect]
     Active Substance: BETAHISTINE
     Indication: Product used for unknown indication
     Dosage: 20 MG, BID
     Route: 065
  36. BETAHISTINE [Suspect]
     Active Substance: BETAHISTINE
     Dosage: 20 MG, QD
     Route: 065
  37. BETAHISTINE [Suspect]
     Active Substance: BETAHISTINE
     Dosage: 24 MG, QD
     Route: 065
  38. DENOSUMAB [Suspect]
     Active Substance: DENOSUMAB
     Indication: Product used for unknown indication
     Dosage: 60 MG
     Route: 065
  39. DONEPEZIL [Suspect]
     Active Substance: DONEPEZIL
     Indication: Product used for unknown indication
     Dosage: 5 MG
     Route: 065
  40. HYDROXYZINE [Suspect]
     Active Substance: HYDROXYZINE HYDROCHLORIDE
     Dosage: 40 MG, QD (40 MG, QD/1-0-0/25 MG, AD HOC, USUALLY)
     Route: 065
  41. HYDROXYZINE [Suspect]
     Active Substance: HYDROXYZINE HYDROCHLORIDE
     Dosage: 25 MG, AS NECESSARY (DOSAGE SCHEDULE: ON DEMAND, TYPICALLY 2 X/24 H)
     Route: 065
  42. HYDROXYZINE [Suspect]
     Active Substance: HYDROXYZINE HYDROCHLORIDE
     Dosage: 2 DOSAGE FORM, 2 IOU
     Route: 065
  43. INSULIN NOS [Suspect]
     Active Substance: INSULIN NOS
     Indication: Blood glucose abnormal
     Route: 065
  44. POTASSIUM CHLORIDE [Suspect]
     Active Substance: POTASSIUM CHLORIDE
     Dosage: 2 DOSAGE FORM, QD ( 2 DOSAGE FORMS DAILY; 1 TABLET (391 K PLUS) EVERY 2 DAYS (1  DOSAGE FORMS,1 IN 2
     Route: 065
  45. LEVOTHYROXINE [Suspect]
     Active Substance: LEVOTHYROXINE
     Indication: Product used for unknown indication
     Dosage: 100 UG, QD
     Route: 065
  46. METFORMIN [Suspect]
     Active Substance: METFORMIN HYDROCHLORIDE
     Indication: Type 2 diabetes mellitus
     Route: 065
  47. QUETIAPINE [Suspect]
     Active Substance: QUETIAPINE
     Indication: Product used for unknown indication
     Dosage: 25 MG, QD (25 MG, QD/0-0-1)
     Route: 065
  48. TORSEMIDE [Suspect]
     Active Substance: TORSEMIDE
     Indication: Product used for unknown indication
     Dosage: 5 MG, QD ( 5 MG, QD/1-0-0 )
     Route: 065
  49. VORTIOXETINE [Suspect]
     Active Substance: VORTIOXETINE
     Indication: Product used for unknown indication
     Dosage: 10 MG, QD (10 MG, QD/0-0-1)
     Route: 065
  50. NIKETHAMIDE [Suspect]
     Active Substance: NIKETHAMIDE
     Indication: Product used for unknown indication
     Dosage: UNK UNK, PRN (UNK, 1,5 + 125 MG, AD HOC)
     Route: 065
  51. VITAMIN D3 [Suspect]
     Active Substance: CHOLECALCIFEROL
     Indication: Product used for unknown indication
     Dosage: 1 DOSAGE FORM
     Route: 065
  52. RUFLOXACIN [Concomitant]
     Active Substance: RUFLOXACIN
     Indication: Nasopharyngitis
     Dosage: 2 DOSAGE FORM ( 1 DOSAGE FORM, BID  )
     Route: 048
  53. Lan di [Concomitant]
     Indication: Hypertension
     Dosage: 1 DOSAGE FORM, QD (1 DOSAGE FORM, QD (AMLODIPINE BESILATE: 50.0MG )  )
     Route: 048
  54. HYDROXYZINE [Concomitant]
     Active Substance: HYDROXYZINE HYDROCHLORIDE
     Indication: Product used for unknown indication
     Dosage: 25 MG 0.5 DAY
     Route: 065
  55. AMLODIPINE BESYLATE [Concomitant]
     Active Substance: AMLODIPINE BESYLATE
     Indication: Hypertension
     Dosage: 1 DOSAGE FORM, QD
     Route: 048

REACTIONS (43)
  - Hypoglycaemia [Unknown]
  - Fall [Recovering/Resolving]
  - Hyponatraemia [Unknown]
  - Drug ineffective [Unknown]
  - Blood creatinine increased [Unknown]
  - General physical health deterioration [Unknown]
  - Orthostatic hypotension [Unknown]
  - Blood urea increased [Unknown]
  - Parkinsonism [Unknown]
  - Dementia [Unknown]
  - Sedation [Recovering/Resolving]
  - Drug dependence [Unknown]
  - Motor dysfunction [Recovering/Resolving]
  - Constipation [Unknown]
  - Blood potassium increased [Unknown]
  - Dysuria [Unknown]
  - Neuroglycopenia [Unknown]
  - Urinary retention [Unknown]
  - Mobility decreased [Recovering/Resolving]
  - Arthralgia [Unknown]
  - Initial insomnia [Unknown]
  - Diabetes mellitus inadequate control [Unknown]
  - Blood cholesterol decreased [Unknown]
  - Gastric polyps [Unknown]
  - Dizziness [Recovering/Resolving]
  - Atrioventricular block first degree [Recovering/Resolving]
  - Bradykinesia [Unknown]
  - Hypotonia [Unknown]
  - Muscle rigidity [Unknown]
  - Melaena [Unknown]
  - Abdominal pain upper [Unknown]
  - Insomnia [Unknown]
  - Stupor [Unknown]
  - Atrial fibrillation [Unknown]
  - Hyperkalaemia [Unknown]
  - Cognitive disorder [Unknown]
  - Hiatus hernia [Unknown]
  - Osteoporosis [Unknown]
  - Hyperglycaemia [Unknown]
  - Peripheral circulatory failure [Unknown]
  - Medication error [Unknown]
  - Drug interaction [Unknown]
  - Multiple drug therapy [Unknown]

NARRATIVE: CASE EVENT DATE: 20210101
